FAERS Safety Report 13276373 (Version 1)
Quarter: 2017Q1

REPORT INFORMATION
  Report Type: Report from Study
  Country: SG (occurrence: SG)
  Receive Date: 20170228
  Receipt Date: 20170228
  Transmission Date: 20170428
  Serious: Yes (Hospitalization, Other)
  Sender: FDA-Public Use
  Company Number: SG-SUN PHARMACEUTICAL INDUSTRIES LTD-2017R1-134029

PATIENT
  Age: 36 Year
  Sex: Male

DRUGS (1)
  1. PARACETAMOL [Suspect]
     Active Substance: ACETAMINOPHEN
     Indication: MIGRAINE
     Route: 048

REACTIONS (3)
  - Overdose [Unknown]
  - Hepatitis [Unknown]
  - Hepatotoxicity [Unknown]
